FAERS Safety Report 18041325 (Version 2)
Quarter: 2020Q3

REPORT INFORMATION
  Report Type: Report from Study
  Country: US (occurrence: US)
  Receive Date: 20200719
  Receipt Date: 20200729
  Transmission Date: 20201103
  Serious: Yes (Other)
  Sender: FDA-Public Use
  Company Number: US-BIOGEN-2020BI00898439

PATIENT
  Age: 35 Year
  Sex: Female

DRUGS (1)
  1. TYSABRI [Suspect]
     Active Substance: NATALIZUMAB
     Indication: MULTIPLE SCLEROSIS
     Route: 065
     Dates: start: 20160811

REACTIONS (3)
  - Seizure [Not Recovered/Not Resolved]
  - Influenza [Not Recovered/Not Resolved]
  - Syncope [Not Recovered/Not Resolved]

NARRATIVE: CASE EVENT DATE: 20200303
